FAERS Safety Report 15113215 (Version 1)
Quarter: 2018Q3

REPORT INFORMATION
  Report Type: Spontaneous
  Country: US (occurrence: US)
  Receive Date: 20180706
  Receipt Date: 20180706
  Transmission Date: 20181010
  Serious: No
  Sender: FDA-Public Use
  Company Number: US-GLENMARK PHARMACEUTICALS-2018GMK035240

PATIENT

DRUGS (3)
  1. LAMOTRIGINE. [Suspect]
     Active Substance: LAMOTRIGINE
     Indication: PRODUCT USED FOR UNKNOWN INDICATION
     Dosage: UNK
     Route: 065
  2. LITHIUM. [Suspect]
     Active Substance: LITHIUM
     Indication: PRODUCT USED FOR UNKNOWN INDICATION
     Dosage: UNK
     Route: 065
  3. DEPAKOTE [Concomitant]
     Active Substance: DIVALPROEX SODIUM
     Indication: PRODUCT USED FOR UNKNOWN INDICATION
     Dosage: UNK
     Route: 065

REACTIONS (12)
  - Weight increased [Unknown]
  - Obsessive thoughts [Recovered/Resolved]
  - Nightmare [Unknown]
  - Paranoia [Not Recovered/Not Resolved]
  - Irritability [Unknown]
  - Panic attack [Recovered/Resolved]
  - Suspiciousness [Unknown]
  - Anger [Unknown]
  - Feeling abnormal [Recovered/Resolved]
  - Abnormal dreams [Unknown]
  - Anxiety [Unknown]
  - Insomnia [Unknown]
